FAERS Safety Report 6877499-4 (Version None)
Quarter: 2010Q3

REPORT INFORMATION
  Report Type: 
  Country: None (occurrence: None)
  Receive Date: 20100727
  Receipt Date: 20091208
  Transmission Date: 20110219
  Serious: No
  Sender: FDA-Public Use
  Company Number: US-ABBOTT-09P-163-0608411-00

PATIENT
  Sex: Female
  Weight: 53.572 kg

DRUGS (2)
  1. SYNTHROID [Suspect]
     Indication: HYPOTHYROIDISM
     Dates: start: 20060101
  2. SYNTHROID [Suspect]
     Dates: end: 20091109

REACTIONS (4)
  - ABDOMINAL PAIN UPPER [None]
  - COELIAC DISEASE [None]
  - FREQUENT BOWEL MOVEMENTS [None]
  - THERAPY REGIMEN CHANGED [None]
